FAERS Safety Report 7683016-1 (Version None)
Quarter: 2011Q3

REPORT INFORMATION
  Report Type: 
  Country: None (occurrence: None)
  Receive Date: 20110815
  Receipt Date: 20110810
  Transmission Date: 20111222
  Serious: Yes (Death)
  Sender: FDA-Public Use
  Company Number: CO-PFIZER INC-2011184934

PATIENT
  Sex: Female

DRUGS (3)
  1. LIPITOR [Suspect]
     Dosage: 20 MG, 1X/DAY
     Route: 048
     Dates: start: 20070303
  2. OLMESARTAN MEDOXOMIL [Suspect]
     Dosage: 40 MG, 1X/DAY
     Dates: start: 20101013
  3. SPIRONOLACTONE [Concomitant]
     Dosage: 1000 MG, 1X/DAY

REACTIONS (1)
  - DEATH [None]
